FAERS Safety Report 11340833 (Version 2)
Quarter: 2015Q3

REPORT INFORMATION
  Report Type: Spontaneous
  Country: NL (occurrence: NL)
  Receive Date: 20150805
  Receipt Date: 20150818
  Transmission Date: 20151125
  Serious: Yes (Other)
  Sender: FDA-Public Use
  Company Number: PHHY2015NL092101

PATIENT
  Age: 17 Year
  Sex: Female

DRUGS (1)
  1. RISPERIDONE. [Suspect]
     Active Substance: RISPERIDONE
     Indication: BIPOLAR I DISORDER
     Dosage: 2 MG, QD
     Route: 065

REACTIONS (10)
  - Intracranial pressure increased [Recovering/Resolving]
  - Vision blurred [Recovering/Resolving]
  - Visual field defect [Recovering/Resolving]
  - Papilloedema [Recovering/Resolving]
  - Blindness [Recovering/Resolving]
  - Nausea [Recovering/Resolving]
  - Diplopia [Recovering/Resolving]
  - Headache [Recovering/Resolving]
  - Weight increased [Recovering/Resolving]
  - VIth nerve paralysis [Recovering/Resolving]
